FAERS Safety Report 5135028-X (Version None)
Quarter: 2006Q4

REPORT INFORMATION
  Report Type: 
  Country: None (occurrence: None)
  Receive Date: 20061025
  Receipt Date: 20060829
  Transmission Date: 20070319
  Serious: Yes (Death, Life-Threatening, Hospitalization, Other)
  Sender: FDA-Public Use
  Company Number: US-MERCK-0608USA06858

PATIENT
  Age: 85 Year
  Sex: Female

DRUGS (10)
  1. CANCIDAS [Suspect]
     Indication: CANDIDIASIS
     Route: 042
     Dates: start: 20060827, end: 20060829
  2. AMIODARONA [Concomitant]
     Route: 065
  3. FLUCONAZOLE [Concomitant]
     Route: 065
  4. LEVOTHYROXINE SODIUM [Concomitant]
     Route: 065
  5. ACETAMINOPHEN [Concomitant]
     Route: 065
  6. DILANTIN [Concomitant]
     Route: 065
  7. VANCOMYCIN [Concomitant]
     Route: 065
  8. LASIX [Concomitant]
     Route: 065
  9. PROTONIX [Concomitant]
     Route: 065
  10. MEROPENEM [Concomitant]
     Route: 065

REACTIONS (1)
  - MULTI-ORGAN FAILURE [None]
